FAERS Safety Report 6805225-3 (Version None)
Quarter: 2010Q2

REPORT INFORMATION
  Report Type: 
  Country: None (occurrence: None)
  Receive Date: 20100628
  Receipt Date: 20071015
  Transmission Date: 20101027
  Serious: No
  Sender: FDA-Public Use
  Company Number: US-PFIZER INC-2007086382

PATIENT
  Sex: Female

DRUGS (1)
  1. GENOTROPIN [Suspect]
     Route: 058

REACTIONS (5)
  - ARTHRALGIA [None]
  - BACK PAIN [None]
  - EYE SWELLING [None]
  - HEART RATE IRREGULAR [None]
  - SWELLING [None]
